FAERS Safety Report 21082363 (Version 1)
Quarter: 2022Q3

REPORT INFORMATION
  Report Type: Report from Study
  Country: US (occurrence: US)
  Receive Date: 20220714
  Receipt Date: 20220714
  Transmission Date: 20221026
  Serious: Yes (Other)
  Sender: FDA-Public Use
  Company Number: US-KOREA IPSEN Pharma-2022-04776

PATIENT
  Age: 64 Year
  Sex: Male

DRUGS (1)
  1. SOMATULINE DEPOT [Suspect]
     Active Substance: LANREOTIDE ACETATE
     Indication: Acromegaly
     Dosage: 120 MG/0.5 ML, BUTTOCKS
     Route: 058
     Dates: start: 202110

REACTIONS (9)
  - Atrial fibrillation [Not Recovered/Not Resolved]
  - Hernia [Not Recovered/Not Resolved]
  - Retroperitoneal disorder [Not Recovered/Not Resolved]
  - Anxiety [Not Recovered/Not Resolved]
  - Depression [Not Recovered/Not Resolved]
  - Post procedural complication [Recovering/Resolving]
  - Insulin-like growth factor abnormal [Recovering/Resolving]
  - Irritability [Recovering/Resolving]
  - Off label use [Unknown]

NARRATIVE: CASE EVENT DATE: 20220101
